FAERS Safety Report 8208234-5 (Version None)
Quarter: 2012Q1

REPORT INFORMATION
  Report Type: 
  Country: None (occurrence: None)
  Receive Date: 20120314
  Receipt Date: 20120309
  Transmission Date: 20120608
  Serious: Yes (Death, Hospitalization)
  Sender: FDA-Public Use
  Company Number: PHEH2012US002048

PATIENT
  Sex: Male

DRUGS (23)
  1. NEORAL [Suspect]
     Dosage: 75 MG, UNK
  2. CITALOPRAM [Concomitant]
     Dosage: 20 MG, UNK
  3. TEMAZEPAM [Concomitant]
     Dosage: 30 MG, AT BEDTIME
  4. METOPROLOL [Concomitant]
     Dosage: 625 MG, BID
  5. RENAGEL [Concomitant]
     Dosage: 200 MG, WITH MEALS
  6. AZATHIOPRINE [Concomitant]
     Dosage: 50 MG, DAILY
  7. NEORAL [Suspect]
     Dosage: 25 MG, BID
     Route: 048
  8. NEORAL [Suspect]
     Dosage: 125 MG, UNK
     Route: 048
  9. PENICILLIN [Concomitant]
     Dosage: UNK UKN, UNK
     Route: 042
  10. CIPRO [Concomitant]
     Dosage: 500 MG, BID
  11. ULTRAM [Concomitant]
     Dosage: 50 MG, UNK
     Route: 048
  12. PREDNISONE [Concomitant]
     Dosage: 5 MG, ONCE DAILY
  13. ALBUTEROL [Concomitant]
     Dosage: UNK UKN, UNK
  14. SODIUM BICARBONATE [Concomitant]
     Dosage: 1300 MG, UNK
  15. BUSPAR [Concomitant]
     Dosage: 5 MG, BEDTIME
  16. ACETAMINOPHEN [Concomitant]
     Dosage: UNK UKN, UNK
  17. GUAIFENESIN [Concomitant]
     Dosage: 5 MG, BEDTIME
  18. ATIVAN [Concomitant]
     Dosage: UNK UKN, UNK
  19. AMBIEN [Concomitant]
     Dosage: 10 MG, UNK
     Route: 048
  20. CELEXA [Concomitant]
     Dosage: 20 MG, UNK
     Route: 048
  21. VITAMIN D [Concomitant]
     Dosage: DAILY
  22. SIMVASTATIN [Concomitant]
     Dosage: 10 MG, DAILY
  23. LOVASTATIN [Concomitant]
     Dosage: 20 MG, DAILY

REACTIONS (24)
  - AORTIC VALVE INCOMPETENCE [None]
  - CEREBROVASCULAR ACCIDENT [None]
  - HYPOXIA [None]
  - ACUTE MYOCARDIAL INFARCTION [None]
  - LEUKOCYTOSIS [None]
  - TRICUSPID VALVE INCOMPETENCE [None]
  - INTERSTITIAL LUNG DISEASE [None]
  - MALNUTRITION [None]
  - DYSPNOEA EXERTIONAL [None]
  - MITRAL VALVE STENOSIS [None]
  - COLONIC POLYP [None]
  - CARDIAC FAILURE CONGESTIVE [None]
  - RENAL FAILURE CHRONIC [None]
  - DEATH [None]
  - CEREBRAL ARTERY EMBOLISM [None]
  - BLINDNESS UNILATERAL [None]
  - HYPERTENSION [None]
  - HYPERLIPIDAEMIA [None]
  - ENDOCARDITIS BACTERIAL [None]
  - EMBOLISM [None]
  - MITRAL VALVE INCOMPETENCE [None]
  - GASTROINTESTINAL HAEMORRHAGE [None]
  - AORTIC STENOSIS [None]
  - RENAL IMPAIRMENT [None]
